FAERS Safety Report 6020710-2 (Version None)
Quarter: 2008Q4

REPORT INFORMATION
  Report Type: 
  Country: None (occurrence: None)
  Receive Date: 20081222
  Receipt Date: 20081208
  Transmission Date: 20090506
  Serious: Yes (Death, Other)
  Sender: FDA-Public Use
  Company Number: MPS1-1000140

PATIENT
  Age: 6 Year
  Sex: Male

DRUGS (4)
  1. ALDURAZYME [Suspect]
     Indication: MUCOPOLYSACCHARIDOSIS I
     Dosage: 0.58 MG/KG, 1X/W, INTRAVENOUS
     Route: 042
     Dates: start: 20080927
  2. CAPTOPRIL [Concomitant]
  3. FUROSEMIDE [Concomitant]
  4. ESPIRONOLACTONA (SPIRONOLACTONE) [Concomitant]

REACTIONS (4)
  - ADENOIDAL HYPERTROPHY [None]
  - CARDIOMYOPATHY [None]
  - RESPIRATORY FAILURE [None]
  - SLEEP APNOEA SYNDROME [None]
